FAERS Safety Report 5391227-3 (Version None)
Quarter: 2007Q3

REPORT INFORMATION
  Report Type: 
  Country: None (occurrence: None)
  Receive Date: 20070717
  Receipt Date: 20070702
  Transmission Date: 20080115
  Serious: Yes (Hospitalization)
  Sender: FDA-Public Use
  Company Number: ABX02-07-0141

PATIENT
  Age: 53 Year
  Sex: Female
  Weight: 62.1428 kg

DRUGS (10)
  1. ABRAXANE [Suspect]
     Indication: BREAST CANCER
     Dosage: SEE IMAGE
     Route: 042
     Dates: start: 20070103, end: 20070201
  2. GEMCITABINE [Suspect]
     Indication: BREAST CANCER
     Dosage: SEE IMAGE
     Route: 042
     Dates: start: 20070103, end: 20070201
  3. EPIRUBICIN [Suspect]
     Indication: BREAST CANCER
     Dosage: SEE IMAGE
     Dates: start: 20070103, end: 20070201
  4. NEULASTA [Suspect]
     Indication: COLONY STIMULATING FACTOR PROPHYLAXIS
     Dosage: SEE IMAGE
     Route: 058
     Dates: start: 20070104, end: 20070201
  5. EMEND (ANTIEMETICS AND ANTINAUSEANTS) [Concomitant]
  6. COMPAZINE [Concomitant]
  7. DARVOCET [Concomitant]
  8. MIRALAX POWDER (MACROGOL) [Concomitant]
  9. DICYCLOMINE [Concomitant]
  10. FIBER [Concomitant]

REACTIONS (13)
  - ABSCESS INTESTINAL [None]
  - CANDIDIASIS [None]
  - CLOSTRIDIUM DIFFICILE TOXIN TEST POSITIVE [None]
  - DIVERTICULITIS [None]
  - ENTEROCOLITIS INFECTIOUS [None]
  - ESCHERICHIA INFECTION [None]
  - HAEMOGLOBIN INCREASED [None]
  - LUNG CONSOLIDATION [None]
  - PLATELET COUNT DECREASED [None]
  - PLEURAL EFFUSION [None]
  - PSEUDOMEMBRANOUS COLITIS [None]
  - SEPSIS [None]
  - SIGMOIDITIS [None]
